FAERS Safety Report 21414161 (Version 1)
Quarter: 2022Q4

REPORT INFORMATION
  Report Type: Spontaneous
  Country: FR (occurrence: FR)
  Receive Date: 20221006
  Receipt Date: 20221006
  Transmission Date: 20230113
  Serious: Yes (Other)
  Sender: FDA-Public Use
  Company Number: FR-PFM-2022-06062

PATIENT
  Sex: Female

DRUGS (11)
  1. CYANOCOBALAMIN [Suspect]
     Active Substance: CYANOCOBALAMIN
     Indication: Alopecia
     Dosage: UNK
  2. CLOBETASOL PROPIONATE [Suspect]
     Active Substance: CLOBETASOL PROPIONATE
     Indication: Inflammation
     Dosage: UNK
  3. CLOBETASOL PROPIONATE [Suspect]
     Active Substance: CLOBETASOL PROPIONATE
     Indication: Off label use
  4. TRIAMCINOLONE ACETONIDE [Suspect]
     Active Substance: TRIAMCINOLONE ACETONIDE
     Indication: Alopecia areata
     Dosage: 40 MG ONE INJECTION
     Route: 058
  5. MINOXIDIL [Suspect]
     Active Substance: MINOXIDIL
     Indication: Alopecia areata
     Dosage: UNK
  6. MINOXIDIL [Suspect]
     Active Substance: MINOXIDIL
     Indication: Off label use
  7. AMOXICILLIN TRIHYDRATE [Suspect]
     Active Substance: AMOXICILLIN
     Indication: Inflammation
     Dosage: UNK
     Route: 048
  8. IRON [Suspect]
     Active Substance: IRON
     Indication: Off label use
     Dosage: UNK
  9. IRON [Suspect]
     Active Substance: IRON
     Indication: Alopecia
  10. ISOTRETINOIN [Suspect]
     Active Substance: ISOTRETINOIN
     Indication: Acne
     Dosage: UNK
  11. NIMESULIDE [Suspect]
     Active Substance: NIMESULIDE
     Indication: Alopecia areata
     Dosage: UNK

REACTIONS (10)
  - Ocular hypertension [Unknown]
  - Dermatitis [Recovered/Resolved]
  - Depression [Unknown]
  - Headache [Unknown]
  - Insomnia [Unknown]
  - Injection site alopecia [Recovered/Resolved]
  - Pain [Unknown]
  - Drug ineffective for unapproved indication [Unknown]
  - Product use in unapproved indication [Unknown]
  - Off label use [Unknown]
